FAERS Safety Report 23277172 (Version 1)
Quarter: 2023Q4

REPORT INFORMATION
  Report Type: Spontaneous
  Country: US (occurrence: None)
  Receive Date: 20231207
  Receipt Date: 20231207
  Transmission Date: 20240110
  Serious: Yes (Life-Threatening, Hospitalization)
  Sender: FDA-Public Use
  Company Number: None

PATIENT
  Age: 6 Month
  Sex: Female
  Weight: 4.2 kg

DRUGS (1)
  1. DIAZOXIDE [Suspect]
     Active Substance: DIAZOXIDE
     Indication: Hyperinsulinaemic hypoglycaemia
     Dosage: FREQUENCY : TWICE A DAY;?
     Route: 048
     Dates: start: 20231014, end: 20231129

REACTIONS (7)
  - Oxygen consumption increased [None]
  - Cardiomegaly [None]
  - Brain natriuretic peptide increased [None]
  - Cardio-respiratory arrest [None]
  - Pulmonary hypertension [None]
  - Respiratory failure [None]
  - Therapy cessation [None]

NARRATIVE: CASE EVENT DATE: 20231127
